FAERS Safety Report 25095092 (Version 1)
Quarter: 2025Q1

REPORT INFORMATION
  Report Type: Spontaneous
  Country: US (occurrence: US)
  Receive Date: 20250319
  Receipt Date: 20250319
  Transmission Date: 20250408
  Serious: Yes (Hospitalization)
  Sender: PFIZER
  Company Number: US-PFIZER INC-202500057911

PATIENT
  Age: 70 Year
  Sex: Female
  Weight: 108.86 kg

DRUGS (2)
  1. INLYTA [Suspect]
     Active Substance: AXITINIB
     Indication: Renal cancer
     Dosage: 5MG; TAKES 1 TAB EVERY 12 HOURS BY MOUTH
     Route: 048
     Dates: end: 20250125
  2. INLYTA [Suspect]
     Active Substance: AXITINIB
     Dosage: 5MG; TAKES 1 TAB EVERY 12 HOURS BY MOUTH
     Route: 048
     Dates: start: 20250305

REACTIONS (3)
  - Cervical vertebral fracture [Unknown]
  - Fall [Unknown]
  - Nausea [Unknown]

NARRATIVE: CASE EVENT DATE: 20250120
